FAERS Safety Report 8195882-4 (Version None)
Quarter: 2012Q1

REPORT INFORMATION
  Report Type: 
  Country: None (occurrence: None)
  Receive Date: 20120308
  Receipt Date: 20120302
  Transmission Date: 20120608
  Serious: Yes (Hospitalization, Other)
  Sender: FDA-Public Use
  Company Number: US-ASTRAZENECA-2012SE15014

PATIENT
  Age: 47 Year
  Sex: Female
  Weight: 81.6 kg

DRUGS (16)
  1. LEVOTHYROXINE SODIUM [Concomitant]
     Indication: THYROID DISORDER
     Dosage: DAILY
     Route: 048
  2. DEPAKOTE [Concomitant]
     Indication: CONVULSION
     Route: 048
  3. ZANTAC [Concomitant]
  4. PREVACID [Concomitant]
  5. GABAPENTIN [Concomitant]
     Indication: SPINAL DISORDER
     Route: 048
  6. DEPAKOTE [Concomitant]
     Indication: MIGRAINE PROPHYLAXIS
     Route: 048
  7. MULTI-VITAMIN [Concomitant]
     Dosage: DAILY
     Route: 048
  8. PREMPRO [Concomitant]
     Dosage: 0.3 MG/1.5 MG ONCE IN THE MORNING
  9. NEXIUM [Suspect]
     Route: 048
  10. ZYRTEC [Concomitant]
     Indication: HYPERSENSITIVITY
     Dosage: DAILY
     Route: 048
  11. TRAMADOL HCL [Concomitant]
     Indication: PAIN
     Dosage: 50 MG, 1 TO 2 TABLETS 4 TIMES A DAY AS NEEDED
  12. DEMEROL [Concomitant]
  13. CYCLOBENZAPRINE [Concomitant]
     Indication: MUSCLE RELAXANT THERAPY
     Dosage: 5 MG, 1 TAB 3X PRN
  14. GABAPENTIN [Concomitant]
     Indication: NERVOUS SYSTEM DISORDER
     Route: 048
  15. SUCRALFATE [Concomitant]
     Indication: PROPHYLAXIS AGAINST GASTROINTESTINAL ULCER
  16. DEPOLUPIRON [Concomitant]
     Indication: MENSTRUAL DISORDER
     Dosage: MONTHLY

REACTIONS (12)
  - INTERVERTEBRAL DISC DEGENERATION [None]
  - POST-TRAUMATIC NECK SYNDROME [None]
  - GASTROOESOPHAGEAL REFLUX DISEASE [None]
  - HYPERACUSIS [None]
  - HYPERHIDROSIS [None]
  - PANIC ATTACK [None]
  - DYSPEPSIA [None]
  - ROAD TRAFFIC ACCIDENT [None]
  - URINARY INCONTINENCE [None]
  - DYSPHAGIA [None]
  - SCIATIC NERVE INJURY [None]
  - DRUG DOSE OMISSION [None]
